APPROVED DRUG PRODUCT: ASMANEX TWISTHALER
Active Ingredient: MOMETASONE FUROATE
Strength: 0.22MG/INH
Dosage Form/Route: POWDER;INHALATION
Application: N021067 | Product #001
Applicant: ORGANON LLC
Approved: Mar 30, 2005 | RLD: Yes | RS: Yes | Type: RX